FAERS Safety Report 13158052 (Version 3)
Quarter: 2017Q4

REPORT INFORMATION
  Report Type: Spontaneous
  Country: TR (occurrence: TR)
  Receive Date: 20170127
  Receipt Date: 20171101
  Transmission Date: 20180320
  Serious: Yes (Hospitalization, Other)
  Sender: FDA-Public Use
  Company Number: TR-SUN PHARMACEUTICAL INDUSTRIES LTD-2017RR-132314

PATIENT
  Age: 67 Year
  Sex: Female

DRUGS (2)
  1. METHOTREXATE. [Interacting]
     Active Substance: METHOTREXATE
     Indication: PRODUCT USED FOR UNKNOWN INDICATION
     Dosage: USING WEEKLY; HOWEVER, SHE OCCASIONALLY FORGOT TO TAKE THE DRUG
     Route: 065
  2. LANSOPRAZOLE. [Suspect]
     Active Substance: LANSOPRAZOLE
     Indication: PRODUCT USED FOR UNKNOWN INDICATION
     Dosage: UNK
     Route: 065

REACTIONS (8)
  - Renal impairment [Recovered/Resolved]
  - Hepatic enzyme increased [Unknown]
  - Ulcer [Recovering/Resolving]
  - Drug interaction [Unknown]
  - Mouth ulceration [Recovering/Resolving]
  - Pancytopenia [Recovered/Resolved]
  - Toxicity to various agents [Unknown]
  - Treatment noncompliance [Unknown]
